FAERS Safety Report 9254410 (Version 1)
Quarter: 2013Q2

REPORT INFORMATION
  Report Type: Spontaneous
  Country: US (occurrence: None)
  Receive Date: 20130422
  Receipt Date: 20130422
  Transmission Date: 20140414
  Serious: No
  Sender: FDA-Public Use
  Company Number: None

PATIENT
  Age: 63 Year
  Sex: Female

DRUGS (1)
  1. XELODA [Suspect]
     Indication: BREAST CANCER
     Dosage: 2500MG BID X 10DAYS ON 5 OFF PO
     Route: 048
     Dates: start: 20130220, end: 20130325

REACTIONS (1)
  - Haemorrhage [None]
